FAERS Safety Report 8772670 (Version 2)
Quarter: 2012Q4

REPORT INFORMATION
  Report Type: 
  Country: AU (occurrence: AU)
  Receive Date: 20120905
  Receipt Date: 20120910
  Transmission Date: 20130627
  Serious: Yes (Other)
  Sender: FDA-Public Use
  Company Number: AU-BAYER-2012-091820

PATIENT
  Sex: Female

DRUGS (4)
  1. CANESTEN CLOTRIMAZOLE THRUSH TREATMENT [Suspect]
     Dosage: UNK
     Dates: start: 20120904
  2. ROXITHROMYCIN [Concomitant]
     Indication: PHARYNGITIS
     Dosage: Daily dose 300 mg
     Dates: start: 20120903
  3. ROXITHROMYCIN [Concomitant]
     Indication: LOWER RESPIRATORY TRACT INFECTION
  4. ORAL CONTRACEPTIVE NOS [Concomitant]

REACTIONS (2)
  - Vaginal haemorrhage [None]
  - Burning sensation [None]
